FAERS Safety Report 4696384-X (Version None)
Quarter: 2005Q2

REPORT INFORMATION
  Report Type: 
  Country: None (occurrence: None)
  Receive Date: 20050620
  Receipt Date: 20050606
  Transmission Date: 20051028
  Serious: Yes (Death, Other)
  Sender: FDA-Public Use
  Company Number: 2003024809

PATIENT
  Age: 97 Year
  Sex: Female
  Weight: 40.8237 kg

DRUGS (9)
  1. ZYRTEC [Suspect]
     Indication: ILL-DEFINED DISORDER
     Dosage: 10 MG (DAILY), ORAL
     Route: 048
     Dates: end: 20030101
  2. HYDROXYZINE HCL [Suspect]
     Indication: ILL-DEFINED DISORDER
     Dosage: ORAL
     Route: 048
     Dates: end: 20030101
  3. DILTIAZEM [Suspect]
     Indication: HYPERTENSION
     Dosage: 360 MG (BID), ORAL
     Route: 048
     Dates: start: 20020501
  4. ALBUTEROL [Concomitant]
  5. ALPRAZOLAM [Concomitant]
  6. CITALOPRAM HYDROBROMIDE [Concomitant]
  7. NABUMETONE [Concomitant]
  8. POTASSIUM CHLORIDE [Concomitant]
  9. ZOLPIDEM TARTRATE [Concomitant]

REACTIONS (1)
  - HALLUCINATION [None]
